FAERS Safety Report 14902504 (Version 1)
Quarter: 2018Q2

REPORT INFORMATION
  Report Type: Spontaneous
  Country: US (occurrence: US)
  Receive Date: 20180516
  Receipt Date: 20180516
  Transmission Date: 20180711
  Serious: No
  Sender: FDA-Public Use
  Company Number: US-SA-2017SA078298

PATIENT
  Age: 50 Year
  Sex: Male

DRUGS (2)
  1. SOLOSTAR [Concomitant]
     Active Substance: DEVICE
     Dates: start: 201704
  2. LANTUS SOLOSTAR [Suspect]
     Active Substance: INSULIN GLARGINE
     Dosage: DOSE:15 UNIT(S)
     Route: 065
     Dates: start: 201704

REACTIONS (12)
  - Restlessness [Unknown]
  - Somnolence [Unknown]
  - Ill-defined disorder [Unknown]
  - Headache [Unknown]
  - Pruritus [Unknown]
  - Blood glucose increased [Unknown]
  - Feeling abnormal [Unknown]
  - Ear pain [Unknown]
  - Dizziness [Unknown]
  - Tinnitus [Unknown]
  - Hyperhidrosis [Unknown]
  - Sluggishness [Unknown]

NARRATIVE: CASE EVENT DATE: 201704
